FAERS Safety Report 4610198-8 (Version None)
Quarter: 2005Q1

REPORT INFORMATION
  Report Type: 
  Country: None (occurrence: None)
  Receive Date: 20050315
  Receipt Date: 20050303
  Transmission Date: 20050727
  Serious: Yes (Hospitalization, Other)
  Sender: FDA-Public Use
  Company Number: 2005-UK-00007UK

PATIENT
  Sex: Male

DRUGS (9)
  1. ORAMORPH SR [Suspect]
     Indication: PANCREATIC CARCINOMA
     Dosage: 10 MG IN 5 ML STRENGTH (SEE TEXT), PO
     Route: 048
  2. MORPHINE SULFATE [Concomitant]
  3. ACETAMINOPHEN [Concomitant]
  4. CO-DANTHRAMER (DORBANEX) [Concomitant]
  5. LANSOPRAZOLE [Concomitant]
  6. DEXAMETHASONE [Concomitant]
  7. HUMAN MIXTARD (HUMAN MIXTARD) [Concomitant]
  8. LOSARTAN (LOSARTAN) [Concomitant]
  9. PRAVASTATIN [Concomitant]

REACTIONS (1)
  - DRUG INEFFECTIVE [None]
